FAERS Safety Report 21616490 (Version 2)
Quarter: 2023Q1

REPORT INFORMATION
  Report Type: Report from Study
  Country: US (occurrence: US)
  Receive Date: 20221118
  Receipt Date: 20230323
  Transmission Date: 20230417
  Serious: No
  Sender: FDA-Public Use
  Company Number: US-ABBVIE-4173032

PATIENT
  Age: 28 Year
  Sex: Male

DRUGS (1)
  1. SKYRIZI [Suspect]
     Active Substance: RISANKIZUMAB-RZAA
     Indication: Psoriasis
     Route: 058
     Dates: start: 20220407

REACTIONS (3)
  - Rash [Not Recovered/Not Resolved]
  - Hypersensitivity [Unknown]
  - Dry skin [Unknown]

NARRATIVE: CASE EVENT DATE: 20220901
